FAERS Safety Report 24955073 (Version 1)
Quarter: 2025Q1

REPORT INFORMATION
  Report Type: Spontaneous
  Country: US (occurrence: US)
  Receive Date: 20250211
  Receipt Date: 20250211
  Transmission Date: 20250409
  Serious: Yes (Other)
  Sender: PFIZER
  Company Number: US-PFIZER INC-PV202500015720

PATIENT
  Age: 57 Year
  Sex: Female

DRUGS (2)
  1. LORBRENA [Suspect]
     Active Substance: LORLATINIB
     Dates: start: 20220203, end: 2022
  2. LORBRENA [Suspect]
     Active Substance: LORLATINIB
     Dates: start: 202206

REACTIONS (4)
  - Neuropathy peripheral [Unknown]
  - Weight increased [Unknown]
  - Blood cholesterol increased [Unknown]
  - Blood triglycerides increased [Unknown]

NARRATIVE: CASE EVENT DATE: 20220101
